FAERS Safety Report 6825437-2 (Version None)
Quarter: 2010Q3

REPORT INFORMATION
  Report Type: 
  Country: None (occurrence: None)
  Receive Date: 20100708
  Receipt Date: 20070109
  Transmission Date: 20110219
  Serious: No
  Sender: FDA-Public Use
  Company Number: US-PFIZER INC-2007003124

PATIENT
  Age: 68 Year
  Sex: Female
  Weight: 48.08 kg

DRUGS (5)
  1. CHANTIX [Suspect]
     Indication: SMOKING CESSATION THERAPY
     Dates: start: 20061225
  2. FOSAMAX [Concomitant]
  3. LIPITOR [Concomitant]
  4. MULTI-VITAMINS [Concomitant]
  5. CALTRATE [Concomitant]

REACTIONS (2)
  - DYSGEUSIA [None]
  - NAUSEA [None]
